FAERS Safety Report 8835857 (Version 1)
Quarter: 2012Q4

REPORT INFORMATION
  Report Type: Report from Study
  Country: BR (occurrence: BR)
  Receive Date: 20121011
  Receipt Date: 20121011
  Transmission Date: 20130627
  Serious: Yes (Other)
  Sender: FDA-Public Use
  Company Number: BR-PFIZER INC-2012250380

PATIENT
  Age: 54 Year
  Sex: Male
  Weight: 115 kg

DRUGS (4)
  1. LIPITOR [Suspect]
     Indication: BLOOD CHOLESTEROL INCREASED
     Dosage: 80 mg, 2x/day, every 12 hours
     Route: 048
     Dates: start: 20071008
  2. LIPIDIL [Concomitant]
     Dosage: 2 DF, daily
     Dates: start: 2007
  3. GLUCOVANCE [Concomitant]
     Indication: DIABETES MELLITUS
     Dosage: 2 DF, daily
     Dates: start: 2002
  4. INSULIN [Concomitant]
     Indication: DIABETES MELLITUS
     Dosage: UNK, 3x/day
     Dates: start: 2002

REACTIONS (2)
  - Diabetes mellitus [Unknown]
  - Hypertension [Unknown]
